FAERS Safety Report 16815292 (Version 8)
Quarter: 2019Q3

REPORT INFORMATION
  Report Type: Spontaneous
  Country: US (occurrence: US)
  Receive Date: 20190917
  Receipt Date: 20190917
  Transmission Date: 20191005
  Serious: No
  Sender: FDA-Public Use
  Company Number: US-RECKITT BENCKISER HEALTHCARE INT LIMITED-RB-81452-2019

PATIENT
  Age: 74 Year
  Sex: Male

DRUGS (3)
  1. MUCINEX [Suspect]
     Active Substance: GUAIFENESIN
     Indication: PRODUCT USED FOR UNKNOWN INDICATION
     Dosage: 1200 MILLIGRAM, SINGLE
     Route: 065
     Dates: start: 20190128
  2. MUCINEX [Suspect]
     Active Substance: GUAIFENESIN
     Dosage: 600 MILLIGRAM, SINGLE
     Route: 065
     Dates: start: 20190128
  3. MUCINEX [Suspect]
     Active Substance: GUAIFENESIN
     Dosage: 1200 MILLIGRAM, SINGLE
     Route: 065
     Dates: start: 20190129, end: 20190130

REACTIONS (4)
  - Lacrimation increased [Unknown]
  - Eye irritation [Recovered/Resolved]
  - Ocular hyperaemia [Unknown]
  - Eye discharge [Unknown]

NARRATIVE: CASE EVENT DATE: 20190129
